FAERS Safety Report 14109319 (Version 1)
Quarter: 2017Q4

REPORT INFORMATION
  Report Type: Spontaneous
  Country: US (occurrence: US)
  Receive Date: 20171019
  Receipt Date: 20171019
  Transmission Date: 20180321
  Serious: Yes (Other)
  Sender: FDA-Public Use
  Company Number: US-LUNDBECK-DKLU2038797

PATIENT
  Age: 14 Year
  Sex: Female

DRUGS (5)
  1. ONFI [Suspect]
     Active Substance: CLOBAZAM
     Indication: FOCAL DYSCOGNITIVE SEIZURES
  2. ONFI [Suspect]
     Active Substance: CLOBAZAM
     Indication: EPILEPSY
     Route: 048
     Dates: start: 201512
  3. ONFI [Suspect]
     Active Substance: CLOBAZAM
     Indication: PARTIAL SEIZURES
  4. ONFI [Suspect]
     Active Substance: CLOBAZAM
     Indication: EPILEPSY
  5. ONFI [Suspect]
     Active Substance: CLOBAZAM
     Indication: IDIOPATHIC GENERALISED EPILEPSY

REACTIONS (2)
  - Drug dose omission [Unknown]
  - Drug withdrawal convulsions [Unknown]

NARRATIVE: CASE EVENT DATE: 20171013
